FAERS Safety Report 13977231 (Version 1)
Quarter: 2017Q3

REPORT INFORMATION
  Report Type: Spontaneous
  Country: US (occurrence: US)
  Receive Date: 20170915
  Receipt Date: 20170915
  Transmission Date: 20171128
  Serious: No
  Sender: FDA-Public Use
  Company Number: US-ROCHE-714755

PATIENT

DRUGS (1)
  1. HERCEPTIN [Suspect]
     Active Substance: TRASTUZUMAB
     Indication: PRODUCT USED FOR UNKNOWN INDICATION
     Route: 065

REACTIONS (7)
  - Fatigue [Unknown]
  - Rhinorrhoea [Unknown]
  - Nail disorder [Unknown]
  - Infusion related reaction [Unknown]
  - Decreased appetite [Unknown]
  - Arthralgia [Unknown]
  - Skin exfoliation [Unknown]
